FAERS Safety Report 22177928 (Version 1)
Quarter: 2023Q2

REPORT INFORMATION
  Report Type: Spontaneous
  Country: ES (occurrence: ES)
  Receive Date: 20230405
  Receipt Date: 20230405
  Transmission Date: 20230721
  Serious: Yes (Other)
  Sender: FDA-Public Use
  Company Number: ES-BAYER-2023A044313

PATIENT
  Sex: Male

DRUGS (1)
  1. VERICIGUAT HYDROCHLORIDE [Suspect]
     Active Substance: VERICIGUAT HYDROCHLORIDE
     Dosage: 10 MG
     Dates: start: 20230330

REACTIONS (1)
  - Resting tremor [Not Recovered/Not Resolved]

NARRATIVE: CASE EVENT DATE: 20230330
